FAERS Safety Report 5742294-6 (Version None)
Quarter: 2008Q2

REPORT INFORMATION
  Report Type: 
  Country: None (occurrence: None)
  Receive Date: 20080514
  Receipt Date: 20080514
  Transmission Date: 20081010
  Serious: Yes (Disabling)
  Sender: FDA-Public Use
  Company Number: None

PATIENT
  Age: 17 Year
  Sex: Male
  Weight: 72.5755 kg

DRUGS (1)
  1. CREST PRO HEALTH MOUTHWASH CREST [Suspect]
     Indication: DENTAL DISORDER PROPHYLAXIS
     Dosage: ONE MEASURING CUP TWICE/DAILY PO
     Route: 048
     Dates: start: 20070101, end: 20071215

REACTIONS (2)
  - PHARMACEUTICAL PRODUCT COMPLAINT [None]
  - TOOTH DISCOLOURATION [None]
